FAERS Safety Report 8370608-X (Version None)
Quarter: 2012Q2

REPORT INFORMATION
  Report Type: 
  Country: None (occurrence: None)
  Receive Date: 20120517
  Receipt Date: 20120514
  Transmission Date: 20120825
  Serious: Yes (Hospitalization)
  Sender: FDA-Public Use
  Company Number: DAV-AE-MTX-12-43

PATIENT
  Age: 63 Year
  Sex: Male
  Weight: 8247.3011 kg

DRUGS (9)
  1. HUMIRA [Suspect]
     Indication: RHEUMATOID ARTHRITIS
     Dosage: (40 MG, 1 IN 2 WK),SC
     Route: 058
     Dates: start: 20110614, end: 20111129
  2. METHOTREXATE [Suspect]
     Indication: RHEUMATOID ARTHRITIS
     Dosage: , PER ORAL
     Route: 048
     Dates: start: 20110614, end: 20111129
  3. FOLIC ACID [Concomitant]
  4. ZESTORETIC [Concomitant]
  5. METFORMIN HCL [Concomitant]
  6. ROSUVASTATIN [Concomitant]
  7. ZESTORETIC [Concomitant]
  8. COMMERCIAL HUMIRA (COMMERCIAL HUMIRA) [Concomitant]
  9. METHOTREXATE SODIUM [Concomitant]

REACTIONS (5)
  - LUNG ABSCESS [None]
  - NODULE [None]
  - PLEURAL DISORDER [None]
  - PNEUMOTHORAX [None]
  - STAPHYLOCOCCAL ABSCESS [None]
